FAERS Safety Report 16849703 (Version 1)
Quarter: 2019Q3

REPORT INFORMATION
  Report Type: Report from Study
  Country: US (occurrence: US)
  Receive Date: 20190925
  Receipt Date: 20190925
  Transmission Date: 20191005
  Serious: Yes (Other)
  Sender: FDA-Public Use
  Company Number: US-GLAXOSMITHKLINE-2019-TSO01422-US

PATIENT
  Sex: Female

DRUGS (2)
  1. NIRAPARIB [Suspect]
     Active Substance: NIRAPARIB
     Indication: OVARIAN CANCER
     Dosage: 300 MG, QPM WITHOUT FOOD
     Route: 048
     Dates: start: 20190320, end: 20190610
  2. NIRAPARIB [Suspect]
     Active Substance: NIRAPARIB
     Dosage: 200 MG, QD
     Route: 048

REACTIONS (6)
  - Tenderness [Unknown]
  - Platelet count decreased [Recovered/Resolved]
  - Transfusion [Unknown]
  - Insomnia [Recovering/Resolving]
  - Haemoglobin increased [Unknown]
  - Headache [Unknown]

NARRATIVE: CASE EVENT DATE: 2019
